FAERS Safety Report 6657553-2 (Version None)
Quarter: 2010Q1

REPORT INFORMATION
  Report Type: 
  Country: None (occurrence: None)
  Receive Date: 20100326
  Receipt Date: 20100326
  Transmission Date: 20100710
  Serious: Yes (Other)
  Sender: FDA-Public Use
  Company Number: UK_TT_09_00003

PATIENT
  Sex: Male

DRUGS (19)
  1. DEXRAZOXANE [Suspect]
  2. MERCAPTOPURINE [Concomitant]
  3. THIOGUANINE [Concomitant]
  4. ACYCLOVIR [Concomitant]
  5. ARA-C [Concomitant]
  6. CAELYX [Concomitant]
  7. COTRIM [Concomitant]
  8. CYCLOPHOSPHAMIDE [Concomitant]
  9. DOXORUBICIN HCL [Concomitant]
  10. ITRACONAZOLE [Concomitant]
  11. MERCAPTOPURINE [Concomitant]
  12. METHOTREXATE [Concomitant]
  13. ONCOVIN [Concomitant]
  14. PREDNISOLONE [Concomitant]
  15. RITUXIMAB [Concomitant]
  16. TACROLIMUS [Concomitant]
  17. VINCRISTINE [Concomitant]
  18. VP-16 [Concomitant]
  19. PREDNISOLONE [Concomitant]

REACTIONS (2)
  - NEUTROPENIA [None]
  - RENAL IMPAIRMENT [None]
